FAERS Safety Report 4941113-5 (Version None)
Quarter: 2006Q1

REPORT INFORMATION
  Report Type: 
  Country: None (occurrence: None)
  Receive Date: 20060313
  Receipt Date: 20060228
  Transmission Date: 20060701
  Serious: Yes (Other)
  Sender: FDA-Public Use
  Company Number: US-GLAXOSMITHKLINE-A0595531A

PATIENT
  Sex: Male

DRUGS (5)
  1. ALKERAN [Suspect]
     Dosage: 8TAB CYCLIC
     Route: 048
  2. PREDNISONE TAB [Concomitant]
  3. NIFEDIPINE [Concomitant]
  4. UNKNOWN MEDICATION [Concomitant]
  5. ZOCOR [Concomitant]

REACTIONS (1)
  - NEOPLASM MALIGNANT [None]
